FAERS Safety Report 10431899 (Version 2)
Quarter: 2014Q3

REPORT INFORMATION
  Report Type: Report from Study
  Country: JP (occurrence: JP)
  Receive Date: 20140905
  Receipt Date: 20140905
  Transmission Date: 20150326
  Serious: Yes (Other)
  Sender: FDA-Public Use
  Company Number: JP-AMGEN-JPNCT2013055947

PATIENT
  Sex: Female
  Weight: 46 kg

DRUGS (25)
  1. TAKEPRON [Concomitant]
     Active Substance: LANSOPRAZOLE
     Dosage: 15 MG, QD
     Route: 048
     Dates: start: 20130122, end: 20130507
  2. CALCIUM LACTATE [Concomitant]
     Active Substance: CALCIUM LACTATE
     Dosage: 3 G, QD
     Route: 048
     Dates: start: 20130227, end: 20130319
  3. LYRICA [Concomitant]
     Active Substance: PREGABALIN
     Dosage: 150 MG, QD
     Route: 048
     Dates: start: 20130127, end: 20130507
  4. OXYCONTIN [Concomitant]
     Active Substance: OXYCODONE HYDROCHLORIDE
     Dosage: 10 MG, QD
     Route: 048
     Dates: start: 20130319, end: 20130507
  5. GRAN [Concomitant]
     Active Substance: FILGRASTIM
     Dosage: 75 MG, QD
     Route: 058
     Dates: start: 20130405
  6. ARIMIDEX [Concomitant]
     Active Substance: ANASTROZOLE
     Dosage: UNK
     Route: 065
     Dates: start: 20130125, end: 20130319
  7. CALCICOL [Concomitant]
     Active Substance: CALCIUM GLUCONATE
     Dosage: 10 ML, QD
     Route: 042
     Dates: start: 20130504, end: 20130509
  8. PACIF [Concomitant]
     Dosage: 30 MG, QD
     Route: 048
     Dates: start: 20130313, end: 20130315
  9. ALFAROL [Concomitant]
     Active Substance: ALFACALCIDOL
     Dosage: 2 MUG, QD
     Route: 048
     Dates: start: 20130322, end: 20130507
  10. CRAVIT [Concomitant]
     Active Substance: LEVOFLOXACIN
     Dosage: 500 MG, QD
     Route: 048
     Dates: start: 20130403
  11. EMEND [Concomitant]
     Active Substance: APREPITANT
     Dosage: 125 MG, UNK
     Route: 048
     Dates: start: 20130326, end: 20130418
  12. DECADRON [Concomitant]
     Active Substance: DEXAMETHASONE
     Dosage: 8 MG, QD
     Route: 048
     Dates: start: 20130327, end: 20130419
  13. PACETCOOL [Concomitant]
     Active Substance: CEFOTIAM HYDROCHLORIDE
     Dosage: 2 G, QD
     Route: 042
     Dates: start: 20130503, end: 20130506
  14. EPIRUBICIN HYDROCHLORIDE. [Concomitant]
     Active Substance: EPIRUBICIN HYDROCHLORIDE
     Dosage: UNK
     Route: 065
     Dates: start: 20130326, end: 20130416
  15. SENNOSIDE                          /00571901/ [Concomitant]
     Active Substance: SENNOSIDE A\SENNOSIDE B\SENNOSIDES
     Dosage: 24 MG, QD
     Route: 048
     Dates: start: 20130313, end: 20130507
  16. MUCOSTA [Concomitant]
     Active Substance: REBAMIPIDE
     Dosage: 200 MG, QD
     Route: 048
     Dates: start: 20130126, end: 20130507
  17. CELECOX [Concomitant]
     Active Substance: CELECOXIB
     Dosage: 200 MG, QD
     Route: 048
     Dates: start: 20130122, end: 20130507
  18. MAGLAX [Concomitant]
     Active Substance: MAGNESIUM OXIDE
     Dosage: 600 MG, QD
     Route: 048
     Dates: start: 20130313, end: 20130507
  19. CYCLOPHOSPHAMIDE MONOHYDRATE [Concomitant]
     Active Substance: CYCLOPHOSPHAMIDE
     Dosage: UNK
     Route: 065
     Dates: start: 20130326, end: 20130416
  20. CEFEPIME [Concomitant]
     Active Substance: CEFEPIME\CEFEPIME HYDROCHLORIDE
     Dosage: 2 G, QD
     Route: 042
     Dates: start: 20130405, end: 20130407
  21. DENOSUMAB [Suspect]
     Active Substance: DENOSUMAB
     Indication: METASTASES TO BONE
     Dosage: 120 MG, UNK
     Route: 058
     Dates: start: 20130226
  22. SAWACILLIN [Concomitant]
     Active Substance: AMOXICILLIN
     Dosage: 750 MG, QD
     Route: 048
     Dates: start: 20130419, end: 20130425
  23. ROCALTROL [Concomitant]
     Active Substance: CALCITRIOL
     Dosage: 0.5 MUG, QD
     Route: 048
     Dates: start: 20130227, end: 20130319
  24. MS CONTIN [Concomitant]
     Active Substance: MORPHINE SULFATE
     Dosage: 20 MG, QD
     Route: 048
     Dates: start: 20130315, end: 20130318
  25. NOVAMIN                            /00013304/ [Concomitant]
     Dosage: 15 MG, QD
     Route: 048
     Dates: start: 20130313, end: 20130318

REACTIONS (2)
  - Hypocalcaemia [Recovered/Resolved]
  - Decreased appetite [Recovered/Resolved]

NARRATIVE: CASE EVENT DATE: 20130307
